FAERS Safety Report 8350018 (Version 4)
Quarter: 2013Q2

REPORT INFORMATION
  Report Type: Spontaneous
  Country: US (occurrence: US)
  Receive Date: 20120123
  Receipt Date: 20130424
  Transmission Date: 20140414
  Serious: Yes (Other)
  Sender: FDA-Public Use
  Company Number: US-ELI_LILLY_AND_COMPANY-US201107008103

PATIENT
  Age: 69 Year
  Sex: Female
  Weight: 65 kg

DRUGS (19)
  1. FORTEO [Suspect]
     Indication: OSTEOPOROSIS
     Dosage: 20 UG, QOD
     Route: 058
     Dates: start: 20110929, end: 20130405
  2. FORTEO [Suspect]
     Dosage: 20 UG, QD
     Route: 058
     Dates: start: 20110716
  3. FORTEO [Suspect]
     Dosage: 20 UG, QOD
     Route: 058
  4. FORTEO [Suspect]
     Dosage: 20 UG, QD
     Route: 058
  5. FORTEO [Suspect]
     Dosage: 20 UG, QD
     Route: 058
  6. FORTEO [Suspect]
     Dosage: 20 UG, QOD
     Route: 058
  7. FORTEO [Suspect]
     Dosage: 20 UG, QD
     Route: 058
  8. FORTEO [Suspect]
     Dosage: 20 UG, QOD
  9. PANTOPRAZOLE [Concomitant]
     Dosage: 40 MG, UNK
  10. BENAZEPRIL [Concomitant]
     Dosage: 10 MG, UNK
  11. ATORVASTATIN [Concomitant]
     Dosage: 20 MG, UNK
  12. OXYCODONE WITH APAP [Concomitant]
     Indication: PAIN
     Dosage: 5 MG, PRN
  13. FLUTICASONE [Concomitant]
     Dosage: 50 MG, UNK
  14. FEXOFENADINE [Concomitant]
     Dosage: 180 MG, UNK
  15. PHAZYME [Concomitant]
     Dosage: 18 MG, UNK
  16. VITAMIN D NOS [Concomitant]
     Dosage: 1000 IU, BID
  17. ASPIRIN BAYER [Concomitant]
     Dosage: UNK, BID
  18. CALCIUM [Concomitant]
     Dosage: 600 MG, QD
  19. MULTIVITAMIN [Concomitant]

REACTIONS (10)
  - Renal cancer [Recovered/Resolved]
  - Bladder transitional cell carcinoma [Recovered/Resolved]
  - Heart rate increased [Recovered/Resolved]
  - Palpitations [Recovered/Resolved]
  - Injection site erythema [Unknown]
  - Decreased appetite [Recovered/Resolved]
  - Dizziness [Not Recovered/Not Resolved]
  - Nausea [Unknown]
  - Inappropriate schedule of drug administration [Recovered/Resolved]
  - Inappropriate schedule of drug administration [Unknown]
